FAERS Safety Report 17651090 (Version 2)
Quarter: 2022Q1

REPORT INFORMATION
  Report Type: Spontaneous
  Country: DE (occurrence: DE)
  Receive Date: 20200409
  Receipt Date: 20220103
  Transmission Date: 20220423
  Serious: Yes (Other)
  Sender: FDA-Public Use
  Company Number: DE-002147023-PHHY2018DE126862

PATIENT
  Sex: Female
  Weight: 55 kg

DRUGS (11)
  1. LETROZOLE [Suspect]
     Active Substance: LETROZOLE
     Indication: Breast cancer metastatic
     Dosage: 2.5 MILLIGRAM, ONCE A DAY
     Route: 048
     Dates: start: 20180525
  2. KISQALI [Suspect]
     Active Substance: RIBOCICLIB
     Indication: Breast cancer metastatic
     Dosage: 600 MILLIGRAM, ONCE A DAY
     Route: 048
     Dates: start: 20180620, end: 20181211
  3. KISQALI [Suspect]
     Active Substance: RIBOCICLIB
     Dosage: 400 MILLIGRAM, ONCE A DAY
     Route: 048
     Dates: start: 20181219, end: 20190402
  4. KISQALI [Suspect]
     Active Substance: RIBOCICLIB
     Dosage: 400 MILLIGRAM, ONCE A DAY
     Route: 048
     Dates: start: 20190424, end: 20191001
  5. KISQALI [Suspect]
     Active Substance: RIBOCICLIB
     Dosage: 400 MILLIGRAM, ONCE A DAY
     Route: 048
     Dates: start: 20191107, end: 20210414
  6. KISQALI [Suspect]
     Active Substance: RIBOCICLIB
     Dosage: 400 MILLIGRAM, ONCE A DAY (ADMINISTRATION SCHEME 21 DAYS INTAKE, 7 DAYS PAUSE)
     Route: 048
     Dates: start: 20210506, end: 20210602
  7. KISQALI [Suspect]
     Active Substance: RIBOCICLIB
     Dosage: 600 MILLIGRAM, ONCE A DAY, ADMINISTRATION SCHEME 21 DAYS INTAKE, 7 DAYS PAUSE
     Route: 048
     Dates: start: 20181017, end: 20181211
  8. KISQALI [Suspect]
     Active Substance: RIBOCICLIB
     Dosage: 400 MILLIGRAM, ONCE A DAY (ADMINISTRATION SCHEME 21 DAYS INTAKE, 7 DAYS PAUSE)
     Route: 048
     Dates: start: 20181219, end: 20190402
  9. KISQALI [Suspect]
     Active Substance: RIBOCICLIB
     Dosage: 600 MILLIGRAM, ONCE A DAY
     Route: 048
     Dates: start: 20180620, end: 20181009
  10. KISQALI [Suspect]
     Active Substance: RIBOCICLIB
     Dosage: 200 MILLIGRAM, ADMINISTRATION SCHEME 21 DAYS INTAKE, 7 DAYS PAUSE
     Route: 048
     Dates: start: 20210603, end: 20210912
  11. AFINITOR [Concomitant]
     Active Substance: EVEROLIMUS
     Indication: Product used for unknown indication
     Dosage: UNK
     Route: 065

REACTIONS (6)
  - Leukopenia [Recovering/Resolving]
  - Neutropenia [Recovered/Resolved]
  - Onychoclasis [Not Recovered/Not Resolved]
  - Mucosal inflammation [Recovered/Resolved]
  - Tremor [Recovered/Resolved]
  - Nasal dryness [Not Recovered/Not Resolved]

NARRATIVE: CASE EVENT DATE: 20180718
